FAERS Safety Report 9000028 (Version 5)
Quarter: 2014Q2

REPORT INFORMATION
  Report Type: Spontaneous
  Country: US (occurrence: US)
  Receive Date: 20130102
  Receipt Date: 20140401
  Transmission Date: 20141212
  Serious: Yes (Other)
  Sender: FDA-Public Use
  Company Number: US-PFIZER INC-2012332897

PATIENT
  Age: 58 Year
  Sex: Female
  Weight: 93.42 kg

DRUGS (4)
  1. LYRICA [Suspect]
     Indication: FIBROMYALGIA
     Dosage: 225 MG, 2X/DAY
     Route: 048
  2. LYRICA [Suspect]
     Dosage: UNK
  3. AMBIEN [Concomitant]
     Indication: SLEEP DISORDER
     Dosage: UNK
  4. TORADOL [Concomitant]
     Indication: PAIN
     Dosage: UNK

REACTIONS (4)
  - Back disorder [Recovering/Resolving]
  - Back pain [Recovering/Resolving]
  - Pain [Unknown]
  - Malaise [Unknown]
